FAERS Safety Report 22636115 (Version 1)
Quarter: 2023Q2

REPORT INFORMATION
  Report Type: Spontaneous
  Country: US (occurrence: US)
  Receive Date: 20230623
  Receipt Date: 20230623
  Transmission Date: 20230722
  Serious: Yes (Other)
  Sender: FDA-Public Use
  Company Number: US-ADVANZ PHARMA-202306004819

PATIENT

DRUGS (1)
  1. PREDNISOLONE [Suspect]
     Active Substance: PREDNISOLONE
     Indication: Juvenile idiopathic arthritis
     Dosage: 0.5 MG/KG, QD, SYSTEMIC, DISCONTINUED AFTER 3 DAYS

REACTIONS (2)
  - Normocytic anaemia [Unknown]
  - Product use in unapproved indication [Unknown]
